FAERS Safety Report 14976430 (Version 1)
Quarter: 2018Q2

REPORT INFORMATION
  Report Type: Spontaneous
  Country: GB (occurrence: GB)
  Receive Date: 20180605
  Receipt Date: 20180605
  Transmission Date: 20180711
  Serious: Yes (Hospitalization)
  Sender: FDA-Public Use
  Company Number: GB-ALLERGAN-1828923US

PATIENT
  Sex: Female

DRUGS (1)
  1. MEMANTINE HCL - BP [Suspect]
     Active Substance: MEMANTINE
     Indication: DEMENTIA
     Dosage: 20 MG, QD
     Route: 065

REACTIONS (4)
  - Hospitalisation [Unknown]
  - Refusal of treatment by patient [Unknown]
  - Drug administration error [Unknown]
  - Somnolence [Unknown]

NARRATIVE: CASE EVENT DATE: 201805
